FAERS Safety Report 5336279-1 (Version None)
Quarter: 2007Q2

REPORT INFORMATION
  Report Type: 
  Country: None (occurrence: None)
  Receive Date: 20070315
  Receipt Date: 20061116
  Transmission Date: 20071010
  Serious: No
  Sender: FDA-Public Use
  Company Number: BDI-008873

PATIENT
  Age: 48 Year
  Sex: Female

DRUGS (2)
  1. MULTIHANCE [Suspect]
     Indication: HEADACHE
     Dosage: 14 ML ONCE IV
     Route: 042
     Dates: start: 20061110, end: 20061110
  2. MULTIHANCE [Suspect]
     Indication: HYPOTHALAMO-PITUITARY DISORDER
     Dosage: 14 ML ONCE IV
     Route: 042
     Dates: start: 20061110, end: 20061110

REACTIONS (3)
  - DYSPNOEA [None]
  - FEELING HOT [None]
  - URTICARIA [None]
